FAERS Safety Report 5222518-4 (Version None)
Quarter: 2007Q1

REPORT INFORMATION
  Report Type: 
  Country: None (occurrence: None)
  Receive Date: 20070129
  Receipt Date: 20070123
  Transmission Date: 20070707
  Serious: Yes (Other)
  Sender: FDA-Public Use
  Company Number: US-JNJFOC-20070105996

PATIENT
  Sex: Female
  Weight: 77.11 kg

DRUGS (10)
  1. REMICADE [Suspect]
     Route: 042
  2. REMICADE [Suspect]
     Indication: RHEUMATOID ARTHRITIS
     Route: 042
  3. NORVASC [Concomitant]
  4. COZAAR [Concomitant]
  5. FOLIC ACID [Concomitant]
  6. PREDNISONE [Concomitant]
  7. PLAQUENIL [Concomitant]
  8. GLUCOSAMINE/CHONDROITIN [Concomitant]
  9. CALCIUM [Concomitant]
  10. METHOTREXATE [Concomitant]

REACTIONS (3)
  - CARDIAC DISORDER [None]
  - OEDEMA [None]
  - PULMONARY OEDEMA [None]
